FAERS Safety Report 23202526 (Version 3)
Quarter: 2025Q3

REPORT INFORMATION
  Report Type: Spontaneous
  Country: CA (occurrence: CA)
  Receive Date: 20231120
  Receipt Date: 20250728
  Transmission Date: 20251020
  Serious: Yes (Death, Life-Threatening, Hospitalization, Disabling, Other)
  Sender: SANDOZ
  Company Number: CA-002147023-NVSC2023CA242469

PATIENT
  Age: 44 Year
  Sex: Female
  Weight: 68 kg

DRUGS (107)
  1. ALENDRONATE SODIUM [Suspect]
     Active Substance: ALENDRONATE SODIUM
     Indication: Rheumatoid arthritis
     Route: 065
  2. COSENTYX [Suspect]
     Active Substance: SECUKINUMAB
     Indication: Rheumatoid arthritis
     Route: 005
  3. COSENTYX [Suspect]
     Active Substance: SECUKINUMAB
     Indication: Psoriatic arthropathy
     Route: 065
  4. DICLOFENAC [Suspect]
     Active Substance: DICLOFENAC
     Indication: Product used for unknown indication
     Route: 065
  5. DICLOFENAC SODIUM [Suspect]
     Active Substance: DICLOFENAC SODIUM
     Route: 047
  6. DICLOFENAC SODIUM [Suspect]
     Active Substance: DICLOFENAC SODIUM
     Indication: Product used for unknown indication
     Route: 065
  7. DICLOFENAC SODIUM [Suspect]
     Active Substance: DICLOFENAC SODIUM
     Route: 065
  8. DICLOFENAC SODIUM [Suspect]
     Active Substance: DICLOFENAC SODIUM
     Indication: Product used for unknown indication
     Route: 048
  9. DICLOFENAC SODIUM [Suspect]
     Active Substance: DICLOFENAC SODIUM
     Route: 058
  10. DICLOFENAC SODIUM [Suspect]
     Active Substance: DICLOFENAC SODIUM
     Route: 065
  11. ERELZI [Suspect]
     Active Substance: ETANERCEPT-SZZS
     Dosage: UNK
     Route: 058
  12. ERELZI [Suspect]
     Active Substance: ETANERCEPT-SZZS
     Indication: Rheumatoid arthritis
     Route: 058
  13. FOLIC ACID [Suspect]
     Active Substance: FOLIC ACID
     Route: 048
  14. FOLIC ACID [Suspect]
     Active Substance: FOLIC ACID
     Route: 048
  15. FOLIC ACID [Suspect]
     Active Substance: FOLIC ACID
     Route: 048
  16. FOLIC ACID [Suspect]
     Active Substance: FOLIC ACID
     Route: 058
  17. FOLIC ACID [Suspect]
     Active Substance: FOLIC ACID
     Route: 065
  18. FOLIC ACID [Suspect]
     Active Substance: FOLIC ACID
     Route: 048
  19. FOLIC ACID [Suspect]
     Active Substance: FOLIC ACID
     Indication: Product used for unknown indication
     Route: 065
  20. FOLIC ACID [Suspect]
     Active Substance: FOLIC ACID
     Route: 048
  21. FOLIC ACID [Suspect]
     Active Substance: FOLIC ACID
     Indication: Rheumatoid arthritis
     Route: 048
  22. FOLIC ACID [Suspect]
     Active Substance: FOLIC ACID
     Route: 048
  23. FOLIC ACID [Suspect]
     Active Substance: FOLIC ACID
     Route: 065
  24. FOLIC ACID [Suspect]
     Active Substance: FOLIC ACID
     Route: 048
  25. FOLIC ACID [Suspect]
     Active Substance: FOLIC ACID
     Route: 065
  26. FOLIC ACID [Suspect]
     Active Substance: FOLIC ACID
     Route: 048
  27. FOLIC ACID [Suspect]
     Active Substance: FOLIC ACID
     Route: 048
  28. FOLIC ACID [Suspect]
     Active Substance: FOLIC ACID
     Route: 065
  29. FOLIC ACID [Suspect]
     Active Substance: FOLIC ACID
     Route: 048
  30. FOLIC ACID [Suspect]
     Active Substance: FOLIC ACID
     Route: 065
  31. FOLIC ACID [Suspect]
     Active Substance: FOLIC ACID
     Route: 058
  32. FOLIC ACID [Suspect]
     Active Substance: FOLIC ACID
     Route: 058
  33. FOLIC ACID [Suspect]
     Active Substance: FOLIC ACID
     Route: 065
  34. HYRIMOZ [Suspect]
     Active Substance: ADALIMUMAB-ADAZ
     Indication: Psoriatic arthropathy
     Route: 065
  35. HYRIMOZ [Suspect]
     Active Substance: ADALIMUMAB-ADAZ
     Route: 048
  36. HYRIMOZ [Suspect]
     Active Substance: ADALIMUMAB-ADAZ
     Route: 058
  37. HYRIMOZ [Suspect]
     Active Substance: ADALIMUMAB-ADAZ
     Route: 058
  38. HYRIMOZ [Suspect]
     Active Substance: ADALIMUMAB-ADAZ
     Route: 058
  39. HYDROCORTISONE ACETATE [Suspect]
     Active Substance: HYDROCORTISONE ACETATE
     Indication: Rheumatoid arthritis
     Route: 065
  40. HYDROCORTISONE ACETATE [Suspect]
     Active Substance: HYDROCORTISONE ACETATE
     Route: 065
  41. HYDROCORTISONE ACETATE [Suspect]
     Active Substance: HYDROCORTISONE ACETATE
     Route: 065
  42. HYDROCORTISONE ACETATE [Suspect]
     Active Substance: HYDROCORTISONE ACETATE
     Route: 065
  43. HYDROCORTISONE ACETATE [Suspect]
     Active Substance: HYDROCORTISONE ACETATE
     Route: 065
  44. LEFLUNOMIDE [Suspect]
     Active Substance: LEFLUNOMIDE
     Route: 048
  45. LEFLUNOMIDE [Suspect]
     Active Substance: LEFLUNOMIDE
     Indication: Rheumatoid arthritis
     Route: 048
  46. LEFLUNOMIDE [Suspect]
     Active Substance: LEFLUNOMIDE
     Route: 048
  47. LEFLUNOMIDE [Suspect]
     Active Substance: LEFLUNOMIDE
     Route: 048
  48. LEFLUNOMIDE [Suspect]
     Active Substance: LEFLUNOMIDE
     Route: 058
  49. LEFLUNOMIDE [Suspect]
     Active Substance: LEFLUNOMIDE
     Route: 058
  50. LEFLUNOMIDE [Suspect]
     Active Substance: LEFLUNOMIDE
     Route: 065
  51. LEFLUNOMIDE [Suspect]
     Active Substance: LEFLUNOMIDE
     Indication: Rheumatoid arthritis
     Route: 065
  52. METHOTREXATE [Suspect]
     Active Substance: METHOTREXATE
     Route: 048
  53. METHOTREXATE [Suspect]
     Active Substance: METHOTREXATE
     Dosage: 15 MG, QD, (1 EVERY 1 DAYS)
     Route: 048
  54. METHOTREXATE [Suspect]
     Active Substance: METHOTREXATE
     Route: 048
  55. METHOTREXATE [Suspect]
     Active Substance: METHOTREXATE
     Dosage: 2 G, QD, (1 EVERY 1 DAYS)
     Route: 048
  56. METHOTREXATE [Suspect]
     Active Substance: METHOTREXATE
     Dosage: 2 DOSAGE FORM, QD, (1 EVERY 1 DAYS)
     Route: 048
  57. METHOTREXATE [Suspect]
     Active Substance: METHOTREXATE
     Dosage: 2 DOSAGE FORM, QD, (1 EVERY 1 DAYS)
     Route: 048
  58. METHOTREXATE [Suspect]
     Active Substance: METHOTREXATE
     Dosage: 20 MG, QD
     Route: 048
  59. METHOTREXATE [Suspect]
     Active Substance: METHOTREXATE
     Dosage: 20 MG, QD
     Route: 065
  60. METHOTREXATE [Suspect]
     Active Substance: METHOTREXATE
     Dosage: 20 MG, QD
     Route: 065
  61. METHOTREXATE [Suspect]
     Active Substance: METHOTREXATE
     Dosage: 20 MG, QW, (1 EVERY 1 WEEKS)
     Route: 058
  62. METHOTREXATE [Suspect]
     Active Substance: METHOTREXATE
     Route: 065
  63. METHOTREXATE [Suspect]
     Active Substance: METHOTREXATE
     Route: 048
  64. METHOTREXATE [Suspect]
     Active Substance: METHOTREXATE
     Route: 065
  65. METHOTREXATE [Suspect]
     Active Substance: METHOTREXATE
     Route: 048
  66. METHOTREXATE [Suspect]
     Active Substance: METHOTREXATE
     Indication: Rheumatoid arthritis
     Route: 014
  67. METHOTREXATE [Suspect]
     Active Substance: METHOTREXATE
     Route: 048
  68. METHOTREXATE [Suspect]
     Active Substance: METHOTREXATE
     Route: 048
  69. METHOTREXATE [Suspect]
     Active Substance: METHOTREXATE
     Route: 048
  70. METHOTREXATE [Suspect]
     Active Substance: METHOTREXATE
     Dosage: 25 MG, QD, (1 EVERY 1 DAYS)
     Route: 014
  71. METHOTREXATE [Suspect]
     Active Substance: METHOTREXATE
     Dosage: 25 MG, QD, (1 EVERY 1 DAYS)
     Route: 048
  72. METHOTREXATE [Suspect]
     Active Substance: METHOTREXATE
     Dosage: 25 MG, QD, (1 EVERY 1 DAYS)
     Route: 058
  73. METHOTREXATE [Suspect]
     Active Substance: METHOTREXATE
     Dosage: 25 MG, QD, (1 EVERY 1 DAYS)
     Route: 014
  74. METHOTREXATE [Suspect]
     Active Substance: METHOTREXATE
     Dosage: 25 MG, QD, (1 EVERY 1 DAYS)
     Route: 048
  75. METHOTREXATE [Suspect]
     Active Substance: METHOTREXATE
     Dosage: 25 MG, QD, (1 EVERY 1 DAYS)
     Route: 058
  76. METHOTREXATE [Suspect]
     Active Substance: METHOTREXATE
     Dosage: 25 MG, QD, (1 EVERY 1 WEEKS)
     Route: 048
  77. METHOTREXATE [Suspect]
     Active Substance: METHOTREXATE
     Dosage: 25 MG, QD, (1 EVERY 1 WEEKS)
     Route: 048
  78. METHOTREXATE [Suspect]
     Active Substance: METHOTREXATE
     Route: 048
  79. METHOTREXATE [Suspect]
     Active Substance: METHOTREXATE
     Route: 065
  80. METHOTREXATE [Suspect]
     Active Substance: METHOTREXATE
     Route: 048
  81. METHOTREXATE [Suspect]
     Active Substance: METHOTREXATE
     Route: 058
  82. METHOTREXATE [Suspect]
     Active Substance: METHOTREXATE
     Route: 058
  83. METHOTREXATE [Suspect]
     Active Substance: METHOTREXATE
     Route: 065
  84. METHOTREXATE [Suspect]
     Active Substance: METHOTREXATE
     Route: 013
  85. METHOTREXATE [Suspect]
     Active Substance: METHOTREXATE
     Route: 013
  86. METHOTREXATE [Suspect]
     Active Substance: METHOTREXATE
     Route: 048
  87. METHOTREXATE [Suspect]
     Active Substance: METHOTREXATE
     Route: 058
  88. METHOTREXATE [Suspect]
     Active Substance: METHOTREXATE
     Dosage: 500 MG, Q12H, (1 EVERY 12 HOURS)
     Route: 065
  89. METHOTREXATE [Suspect]
     Active Substance: METHOTREXATE
     Dosage: 500 MG, Q12H, (1 EVERY 12 HOURS)
     Route: 065
  90. METHOTREXATE [Suspect]
     Active Substance: METHOTREXATE
     Dosage: UNK, QD, (1 EVERY 1 DAYS)
     Route: 048
  91. METHOTREXATE [Suspect]
     Active Substance: METHOTREXATE
     Dosage: UNK, QD, (1 EVERY 1 DAYS)
     Route: 048
  92. METHOTREXATE [Suspect]
     Active Substance: METHOTREXATE
     Route: 065
  93. METHOTREXATE [Suspect]
     Active Substance: METHOTREXATE
     Route: 014
  94. METHOTREXATE [Suspect]
     Active Substance: METHOTREXATE
     Indication: Rheumatoid arthritis
     Route: 048
  95. METHOTREXATE [Suspect]
     Active Substance: METHOTREXATE
     Route: 065
  96. MOXIFLOXACIN [Suspect]
     Active Substance: MOXIFLOXACIN
     Route: 047
  97. MOXIFLOXACIN [Suspect]
     Active Substance: MOXIFLOXACIN
     Indication: Product used for unknown indication
     Route: 058
  98. MYCOPHENOLATE MOFETIL [Suspect]
     Active Substance: MYCOPHENOLATE MOFETIL
     Indication: Product used for unknown indication
     Route: 065
  99. OXYCODONE [Suspect]
     Active Substance: OXYCODONE
     Indication: Product used for unknown indication
     Route: 065
  100. PANTOPRAZOLE [Suspect]
     Active Substance: PANTOPRAZOLE
     Indication: Product used for unknown indication
     Route: 016
  101. PANTOPRAZOLE SODIUM [Suspect]
     Active Substance: PANTOPRAZOLE SODIUM
     Indication: Product used for unknown indication
     Route: 016
  102. RITUXIMAB [Suspect]
     Active Substance: RITUXIMAB
     Indication: Rheumatoid arthritis
     Route: 040
  103. RITUXIMAB [Suspect]
     Active Substance: RITUXIMAB
     Route: 016
  104. RITUXIMAB [Suspect]
     Active Substance: RITUXIMAB
     Route: 058
  105. RITUXIMAB [Suspect]
     Active Substance: RITUXIMAB
     Route: 040
  106. RITUXIMAB [Suspect]
     Active Substance: RITUXIMAB
     Route: 040
  107. RITUXIMAB [Suspect]
     Active Substance: RITUXIMAB
     Route: 065

REACTIONS (28)
  - Adjustment disorder with depressed mood [Fatal]
  - Dislocation of vertebra [Fatal]
  - Facet joint syndrome [Fatal]
  - Fibromyalgia [Fatal]
  - Gait disturbance [Fatal]
  - General physical health deterioration [Fatal]
  - Grip strength decreased [Fatal]
  - Ill-defined disorder [Fatal]
  - Lip dry [Fatal]
  - Blood cholesterol increased [Fatal]
  - Breast cancer stage II [Fatal]
  - Liver disorder [Fatal]
  - Liver injury [Fatal]
  - Hypertension [Fatal]
  - Inflammation [Fatal]
  - Delirium [Fatal]
  - Decreased appetite [Fatal]
  - Anxiety [Fatal]
  - Injury [Fatal]
  - Hypoaesthesia [Fatal]
  - Amnesia [Fatal]
  - Dyspepsia [Fatal]
  - Depression [Fatal]
  - Asthenia [Fatal]
  - Headache [Fatal]
  - Dry mouth [Fatal]
  - Intentional product use issue [Fatal]
  - Off label use [Fatal]
